FAERS Safety Report 6930094-0 (Version None)
Quarter: 2010Q3

REPORT INFORMATION
  Report Type: 
  Country: None (occurrence: None)
  Receive Date: 20100813
  Receipt Date: 20100803
  Transmission Date: 20110219
  Serious: Yes (Other)
  Sender: FDA-Public Use
  Company Number: 010598

PATIENT
  Age: 37 Year
  Sex: Female

DRUGS (2)
  1. BUSULFEX [Suspect]
     Indication: ESSENTIAL THROMBOCYTHAEMIA
  2. ACETYLSALICYLIC ACID (ACETYLSALICYCLIC ACID) [Concomitant]

REACTIONS (2)
  - ARTERIAL THROMBOSIS [None]
  - DEEP VEIN THROMBOSIS [None]
